FAERS Safety Report 8602908-X (Version None)
Quarter: 2012Q3

REPORT INFORMATION
  Report Type: 
  Country: None (occurrence: None)
  Receive Date: 20120817
  Receipt Date: 20120807
  Transmission Date: 20120928
  Serious: Yes (Hospitalization)
  Sender: FDA-Public Use
  Company Number: FR-GLAXOSMITHKLINE-B0821020A

PATIENT
  Sex: Female

DRUGS (7)
  1. MABTHERA [Suspect]
     Indication: IDIOPATHIC THROMBOCYTOPENIC PURPURA
     Dosage: 650MG SINGLE DOSE
     Route: 042
     Dates: start: 20120606, end: 20120606
  2. ZOFRAN [Suspect]
     Indication: PRODUCT USED FOR UNKNOWN INDICATION
     Route: 065
     Dates: start: 20120527, end: 20120603
  3. AUGMENTIN '500' [Concomitant]
     Indication: SEPTIC SHOCK
     Dates: start: 20120522, end: 20120603
  4. ZOLPIDEM TARTRATE [Concomitant]
     Route: 048
     Dates: start: 20120608, end: 20120608
  5. NPLATE [Concomitant]
     Indication: IDIOPATHIC THROMBOCYTOPENIC PURPURA
     Dosage: 500MCG PER DAY
     Route: 058
     Dates: start: 20120523
  6. VINCRISTINE [Suspect]
     Indication: IDIOPATHIC THROMBOCYTOPENIC PURPURA
     Dosage: 2MG SEE DOSAGE TEXT
     Route: 042
     Dates: start: 20120527, end: 20120603
  7. POTASSIUM CHLORIDE [Suspect]
     Indication: PRODUCT USED FOR UNKNOWN INDICATION
     Route: 048
     Dates: start: 20120531, end: 20120606

REACTIONS (2)
  - PRURITUS [None]
  - RASH MACULO-PAPULAR [None]
